FAERS Safety Report 8323375-X (Version None)
Quarter: 2012Q2

REPORT INFORMATION
  Report Type: 
  Country: None (occurrence: None)
  Receive Date: 20120430
  Receipt Date: 20120420
  Transmission Date: 20120825
  Serious: Yes (Disabling)
  Sender: FDA-Public Use
  Company Number: AU-MERCK-1204USA02930

PATIENT
  Age: 62 Year
  Sex: Female
  Weight: 80 kg

DRUGS (3)
  1. SINEMET [Suspect]
     Route: 048
     Dates: start: 20111201, end: 20110101
  2. SINEMET [Suspect]
     Dosage: DOSE WAS REDUCED TO 1 TAB AM AND THREE QUARTERS OF TAB 3 TIMES A DAY
     Route: 048
     Dates: start: 20110101
  3. SINEMET [Suspect]
     Dosage: THREE QUARTERS OF TAB 3 TIMES A DAY
     Route: 048
     Dates: start: 20110101

REACTIONS (2)
  - PRODUCT SUBSTITUTION ISSUE [None]
  - DYSKINESIA [None]
